FAERS Safety Report 21057828 (Version 2)
Quarter: 2022Q3

REPORT INFORMATION
  Report Type: Spontaneous
  Country: JP (occurrence: JP)
  Receive Date: 20220708
  Receipt Date: 20220908
  Transmission Date: 20221027
  Serious: Yes (Life-Threatening, Hospitalization, Other)
  Sender: FDA-Public Use
  Company Number: JP-MSD-M2022-26084

PATIENT
  Age: 65 Year
  Sex: Male

DRUGS (3)
  1. KEYTRUDA [Suspect]
     Active Substance: PEMBROLIZUMAB
     Indication: Renal cell carcinoma stage IV
     Dosage: 200 MILLIGRAM, Q3W
     Route: 041
     Dates: start: 20220112, end: 202205
  2. AXITINIB [Concomitant]
     Active Substance: AXITINIB
     Indication: Renal cell carcinoma stage IV
     Dosage: 2 MILLIGRAM, BID
     Route: 048
     Dates: start: 20220112, end: 2022
  3. AXITINIB [Concomitant]
     Active Substance: AXITINIB
     Dosage: UNK
     Route: 048
     Dates: start: 2022, end: 202205

REACTIONS (2)
  - Cytokine storm [Recovered/Resolved]
  - Hepatic function abnormal [Recovered/Resolved]

NARRATIVE: CASE EVENT DATE: 20220401
